FAERS Safety Report 6172226-0 (Version None)
Quarter: 2009Q2

REPORT INFORMATION
  Report Type: 
  Country: None (occurrence: None)
  Receive Date: 20090429
  Receipt Date: 20090422
  Transmission Date: 20091009
  Serious: Yes (Disabling)
  Sender: FDA-Public Use
  Company Number: BR-ASTRAZENECA-2009UW10176

PATIENT
  Age: 13 Year
  Sex: Female
  Weight: 100 kg

DRUGS (2)
  1. SELOZOK [Suspect]
     Indication: MIGRAINE
     Route: 048
     Dates: start: 20090329, end: 20090401
  2. TOPAMAX [Concomitant]
     Indication: MIGRAINE
     Dates: start: 20090324, end: 20090401

REACTIONS (5)
  - BLINDNESS TRANSIENT [None]
  - DEPRESSION [None]
  - HYPOAESTHESIA [None]
  - INTRAOCULAR PRESSURE INCREASED [None]
  - IRRITABILITY [None]
